FAERS Safety Report 12395128 (Version 5)
Quarter: 2016Q3

REPORT INFORMATION
  Report Type: Spontaneous
  Country: US (occurrence: US)
  Receive Date: 20160523
  Receipt Date: 20160823
  Transmission Date: 20161109
  Serious: Yes (Hospitalization, Other)
  Sender: FDA-Public Use
  Company Number: US-PFIZER INC-2016237325

PATIENT
  Age: 53 Year
  Sex: Female
  Weight: 48 kg

DRUGS (22)
  1. BYSTOLIC [Concomitant]
     Active Substance: NEBIVOLOL HYDROCHLORIDE
     Indication: BLOOD PRESSURE SYSTOLIC INCREASED
     Dosage: 10 MG, 1X/DAY
     Route: 048
     Dates: start: 2015
  2. CYCLOBENZAPRINE [Concomitant]
     Active Substance: CYCLOBENZAPRINE
     Indication: MUSCLE RELAXANT THERAPY
     Dosage: 10 MG, 3X/DAY
     Route: 048
     Dates: start: 20160415
  3. RANITIDINE HCL [Concomitant]
     Active Substance: RANITIDINE HYDROCHLORIDE
     Indication: GASTROOESOPHAGEAL REFLUX DISEASE
     Dosage: 150 MG, 1X/DAY
     Route: 048
  4. XANAX [Concomitant]
     Active Substance: ALPRAZOLAM
     Indication: PANIC DISORDER
     Dosage: 0.5 MG, 1X/DAY
  5. SINGULAIR [Concomitant]
     Active Substance: MONTELUKAST SODIUM
     Indication: HYPERSENSITIVITY
     Dosage: 10 MG, DAILY
     Route: 048
     Dates: start: 2006
  6. NEXIUM [Concomitant]
     Active Substance: ESOMEPRAZOLE MAGNESIUM
     Indication: GASTROOESOPHAGEAL REFLUX DISEASE
     Dosage: 20 MG, 1X/DAY
  7. ARMOUR THYROID [Concomitant]
     Active Substance: THYROID, PORCINE
     Indication: AUTOIMMUNE THYROIDITIS
     Dosage: 120 MG, DAILY (60MG TWO TABLET BY MOUTH SEVEN DAYS A WEEK)
     Route: 048
  8. BYSTOLIC [Concomitant]
     Active Substance: NEBIVOLOL HYDROCHLORIDE
     Indication: BLOOD PRESSURE INCREASED
     Dosage: 20 MG, DAILY
     Route: 048
     Dates: start: 201605
  9. RESTORIL [Concomitant]
     Active Substance: TEMAZEPAM
     Indication: SLEEP DISORDER
     Dosage: 30 MG, 1X/DAY, (BEFORE BED)
  10. XANAX [Concomitant]
     Active Substance: ALPRAZOLAM
     Indication: ANXIETY DISORDER
  11. ZOLOFT [Suspect]
     Active Substance: SERTRALINE HYDROCHLORIDE
     Indication: MAJOR DEPRESSION
     Dosage: 50 MG, DAILY
     Route: 048
     Dates: start: 201511, end: 2015
  12. BIEST [Interacting]
     Active Substance: ESTRADIOL\ESTRIOL
     Indication: HORMONE REPLACEMENT THERAPY
     Dosage: 4.5-100 MG EACH NIGHT
     Route: 060
     Dates: start: 2003
  13. TEMAZEPAM. [Concomitant]
     Active Substance: TEMAZEPAM
     Indication: SLEEP DISORDER
     Dosage: 30 MG, 1X/DAY, (AT BEDTIME)
     Route: 048
     Dates: start: 2014
  14. BENTYL [Concomitant]
     Active Substance: DICYCLOMINE HYDROCHLORIDE
     Indication: IRRITABLE BOWEL SYNDROME
     Dosage: 40 MG, 1X/DAY, (TWO TABLETS BY MOUTH AT BEDTIME)
     Route: 048
  15. ZOLOFT [Interacting]
     Active Substance: SERTRALINE HYDROCHLORIDE
     Indication: OBSESSIVE-COMPULSIVE DISORDER
     Dosage: 75 MG, UNK
     Route: 048
     Dates: start: 201512, end: 20160105
  16. ZOLOFT [Interacting]
     Active Substance: SERTRALINE HYDROCHLORIDE
     Dosage: UNK
     Route: 048
     Dates: start: 20160403, end: 201604
  17. ZANTAC [Concomitant]
     Active Substance: RANITIDINE HYDROCHLORIDE
     Indication: GASTROOESOPHAGEAL REFLUX DISEASE
     Dosage: 150 MG, AS NEEDED (TWICE DAILY )
  18. ZOLOFT [Interacting]
     Active Substance: SERTRALINE HYDROCHLORIDE
     Indication: INTRUSIVE THOUGHTS
     Dosage: 100 MG, 1X/DAY
     Route: 048
     Dates: start: 20160105, end: 201604
  19. ZOLOFT [Interacting]
     Active Substance: SERTRALINE HYDROCHLORIDE
     Dosage: 30 MG, UNK
     Route: 048
     Dates: start: 201604, end: 20160402
  20. BYSTOLIC [Concomitant]
     Active Substance: NEBIVOLOL HYDROCHLORIDE
     Indication: HYPERTENSION
  21. ALPRAZOLAM. [Concomitant]
     Active Substance: ALPRAZOLAM
     Indication: ANXIETY
     Dosage: 0.5 MG, 1X/DAY
     Route: 048
     Dates: start: 2001
  22. OMEPRAZOLE MAGNESIUM. [Concomitant]
     Active Substance: OMEPRAZOLE MAGNESIUM
     Indication: GASTROOESOPHAGEAL REFLUX DISEASE
     Dosage: 20 MG, DAILY
     Route: 048

REACTIONS (60)
  - Apparent death [Unknown]
  - Psychotic disorder [Unknown]
  - Muscle rigidity [Recovering/Resolving]
  - Muscle contractions involuntary [Unknown]
  - Asthenia [Unknown]
  - Vulvovaginal dryness [Unknown]
  - Fatigue [Unknown]
  - Loss of consciousness [Unknown]
  - Renal failure [Recovered/Resolved]
  - Brain death [Unknown]
  - Bradyphrenia [Recovering/Resolving]
  - Bone pain [Unknown]
  - Dysphonia [Not Recovered/Not Resolved]
  - Abnormal behaviour [Unknown]
  - Hypertension [Unknown]
  - Mental impairment [Not Recovered/Not Resolved]
  - Seizure [Recovering/Resolving]
  - Anger [Recovered/Resolved]
  - Diarrhoea [Not Recovered/Not Resolved]
  - Disturbance in attention [Unknown]
  - Paranoia [Unknown]
  - Anxiety [Unknown]
  - Eructation [Unknown]
  - Musculoskeletal stiffness [Recovering/Resolving]
  - Cerebrovascular accident [Unknown]
  - Withdrawal syndrome [Recovering/Resolving]
  - Tremor [Unknown]
  - Blood glucose decreased [Not Recovered/Not Resolved]
  - Sexual dysfunction [Unknown]
  - Thinking abnormal [Recovered/Resolved]
  - Blood thyroid stimulating hormone decreased [Unknown]
  - Migraine [Recovered/Resolved]
  - Bipolar disorder [Unknown]
  - Dehydration [Unknown]
  - Sedation [Recovering/Resolving]
  - Feeling abnormal [Unknown]
  - Tinnitus [Not Recovered/Not Resolved]
  - Heart rate increased [Unknown]
  - Malnutrition [Unknown]
  - Serotonin syndrome [Recovered/Resolved]
  - Poisoning [Unknown]
  - Decreased appetite [Not Recovered/Not Resolved]
  - Confusional state [Recovering/Resolving]
  - Feeling abnormal [Recovering/Resolving]
  - Tremor [Not Recovered/Not Resolved]
  - Dyskinesia [Unknown]
  - Weight decreased [Not Recovered/Not Resolved]
  - Lung disorder [Unknown]
  - Myalgia [Unknown]
  - Mania [Recovered/Resolved with Sequelae]
  - Intentional product use issue [Unknown]
  - Hypertensive crisis [Recovered/Resolved]
  - Drug interaction [Unknown]
  - Hallucination [Unknown]
  - Hypotension [Unknown]
  - Memory impairment [Not Recovered/Not Resolved]
  - Tobacco user [Not Recovered/Not Resolved]
  - Agitation [Unknown]
  - Sunburn [Recovered/Resolved]
  - Eye disorder [Unknown]

NARRATIVE: CASE EVENT DATE: 201511
